FAERS Safety Report 6753069-3 (Version None)
Quarter: 2010Q2

REPORT INFORMATION
  Report Type: 
  Country: None (occurrence: None)
  Receive Date: 20100603
  Receipt Date: 20100520
  Transmission Date: 20101027
  Serious: Yes (Other)
  Sender: FDA-Public Use
  Company Number: PHHY2010JP33238

PATIENT
  Age: 65 Year
  Sex: Male

DRUGS (7)
  1. RASILEZ [Suspect]
     Indication: HYPERTENSION
     Dosage: 150 MG DAILY
     Route: 048
     Dates: start: 20100111, end: 20100520
  2. SELOKEN [Suspect]
     Dosage: 60 MG, UNK
     Route: 048
     Dates: start: 20091215, end: 20100520
  3. ZETIA [Suspect]
     Dosage: 10 MG, UNK
     Route: 048
     Dates: start: 20091117, end: 20100520
  4. ASPIRIN [Concomitant]
     Dosage: 100 MG DAILY
     Route: 048
  5. PLAVIX [Concomitant]
     Dosage: 75 MG
     Route: 048
  6. DIOVAN [Concomitant]
     Dosage: 80 MG
     Route: 048
  7. AMARYL [Concomitant]
     Dosage: 1 MG, BID
     Route: 048

REACTIONS (2)
  - INTERSTITIAL LUNG DISEASE [None]
  - NASOPHARYNGITIS [None]
